FAERS Safety Report 14456778 (Version 1)
Quarter: 2018Q1

REPORT INFORMATION
  Report Type: Spontaneous
  Country: US (occurrence: US)
  Receive Date: 20180129
  Receipt Date: 20180129
  Transmission Date: 20180509
  Serious: Yes (Other)
  Sender: FDA-Public Use
  Company Number: None

PATIENT
  Age: 7 Year
  Sex: Male
  Weight: 112.94 kg

DRUGS (2)
  1. RISPERDAL [Suspect]
     Active Substance: RISPERIDONE
  2. ZYPREXA [Suspect]
     Active Substance: OLANZAPINE

REACTIONS (5)
  - Weight increased [None]
  - Apparent death [None]
  - Road traffic accident [None]
  - Vomiting [None]
  - Alopecia [None]

NARRATIVE: CASE EVENT DATE: 20050101
